FAERS Safety Report 5121890-3 (Version None)
Quarter: 2006Q4

REPORT INFORMATION
  Report Type: 
  Country: None (occurrence: None)
  Receive Date: 20061006
  Receipt Date: 20060919
  Transmission Date: 20070319
  Serious: Yes (Other)
  Sender: FDA-Public Use
  Company Number: GB-GLAXOSMITHKLINE-B0438929A

PATIENT
  Sex: Female

DRUGS (1)
  1. PIRITON ALLERGY TABLETS [Suspect]
     Indication: HYPERSENSITIVITY
     Route: 048

REACTIONS (1)
  - ANAPHYLACTIC REACTION [None]
